FAERS Safety Report 24236245 (Version 5)
Quarter: 2025Q4

REPORT INFORMATION
  Report Type: Spontaneous
  Country: JP (occurrence: JP)
  Receive Date: 20240822
  Receipt Date: 20251008
  Transmission Date: 20260119
  Serious: Yes (Hospitalization)
  Sender: RECORDATI
  Company Number: JP-ORPHANEU-2023008806

PATIENT
  Age: 16 Year
  Sex: Male
  Weight: 34.5 kg

DRUGS (11)
  1. CARBAGLU [Suspect]
     Active Substance: CARGLUMIC ACID
     Indication: Methylmalonic acidaemia
     Dosage: 1200 MG DAILY/ T.I.D
     Route: 048
     Dates: start: 20230314, end: 2023
  2. CARBAGLU [Suspect]
     Active Substance: CARGLUMIC ACID
     Indication: Hyperammonaemia
     Dosage: 3400 MG PER DAY
     Route: 065
     Dates: start: 202311, end: 202311
  3. CARBAGLU [Suspect]
     Active Substance: CARGLUMIC ACID
     Dosage: 1200 MG/DAY AS TID
     Route: 048
     Dates: start: 2023, end: 20231231
  4. CARBAGLU [Suspect]
     Active Substance: CARGLUMIC ACID
     Dosage: 3000 MG/DAY AS TID
     Route: 048
     Dates: start: 20240101, end: 20240109
  5. CARBAGLU [Suspect]
     Active Substance: CARGLUMIC ACID
     Dosage: 1200 MG/DAY AS TID
     Route: 048
     Dates: start: 20240110
  6. Argi u [Concomitant]
     Indication: Methylmalonic acidaemia
     Dosage: 2.6 GRAM
     Route: 048
  7. LEVOCARNITINE HYDROCHLORIDE [Concomitant]
     Active Substance: LEVOCARNITINE HYDROCHLORIDE
     Indication: Methylmalonic acidaemia
     Dosage: 3000 MG
     Route: 048
  8. AMLODIPINE [Concomitant]
     Active Substance: AMLODIPINE BESYLATE
     Indication: Disease complication
     Dosage: 5 MG
     Route: 048
  9. SODIUM BICARBONATE [Concomitant]
     Active Substance: SODIUM BICARBONATE
     Indication: Disease complication
     Dosage: 4.5 G
     Route: 048
  10. ALFACALCIDOL [Concomitant]
     Active Substance: ALFACALCIDOL
     Indication: Disease complication
     Dosage: 1 MICROGRAM
     Route: 048
  11. SODIUM FERROUS CITRATE [Concomitant]
     Active Substance: SODIUM FERROUS CITRATE
     Indication: Disease complication
     Dosage: 100 MG
     Route: 048

REACTIONS (2)
  - Upper respiratory tract inflammation [Recovered/Resolved]
  - Malaise [Recovered/Resolved]

NARRATIVE: CASE EVENT DATE: 20231119
